FAERS Safety Report 11753656 (Version 1)
Quarter: 2015Q4

REPORT INFORMATION
  Report Type: Spontaneous
  Country: US (occurrence: US)
  Receive Date: 20151119
  Receipt Date: 20151119
  Transmission Date: 20160304
  Serious: No
  Sender: FDA-Public Use
  Company Number: US-PFIZER INC-2015384094

PATIENT
  Sex: Female

DRUGS (3)
  1. MORPHINE SULFATE. [Suspect]
     Active Substance: MORPHINE SULFATE
     Dosage: UNK
     Route: 065
  2. FELDENE [Suspect]
     Active Substance: PIROXICAM
     Dosage: UNK
     Route: 065
  3. MACRODANTIN [Suspect]
     Active Substance: NITROFURANTOIN
     Dosage: UNK
     Route: 065

REACTIONS (1)
  - Drug hypersensitivity [Not Recovered/Not Resolved]
